FAERS Safety Report 7069718-9 (Version None)
Quarter: 2010Q4

REPORT INFORMATION
  Report Type: 
  Country: None (occurrence: None)
  Receive Date: 20101028
  Receipt Date: 20100507
  Transmission Date: 20110411
  Serious: No
  Sender: FDA-Public Use
  Company Number: US-WYE-H15065610

PATIENT
  Sex: Male
  Weight: 85.81 kg

DRUGS (9)
  1. PROTONIX [Interacting]
     Indication: GASTROOESOPHAGEAL REFLUX DISEASE
     Dates: start: 20070101
  2. COUMADIN [Suspect]
     Indication: THROMBOSIS
     Dosage: 10 MG DAILY, WITH 11 MG ON MONDAY AND THURSDAY
     Dates: start: 20000101
  3. TOPROL-XL [Suspect]
     Indication: HYPERTENSION
     Dates: start: 20040101
  4. TORASEMIDE [Suspect]
     Indication: FLUID RETENTION
  5. GLUCOPHAGE [Suspect]
     Indication: DIABETES MELLITUS
     Dates: start: 20030101
  6. ZETIA [Suspect]
     Dates: start: 20070101
  7. LOVASTATIN [Suspect]
     Indication: HYPERCHOLESTEROLAEMIA
     Dates: start: 20050101
  8. NIFEDIPINE [Interacting]
     Dates: start: 20100401
  9. COZAAR [Suspect]
     Indication: HYPERTENSION
     Dates: start: 20000101

REACTIONS (2)
  - DIZZINESS POSTURAL [None]
  - DRUG INTERACTION [None]
